FAERS Safety Report 7541550-9 (Version None)
Quarter: 2011Q2

REPORT INFORMATION
  Report Type: 
  Country: None (occurrence: None)
  Receive Date: 20110613
  Receipt Date: 20110606
  Transmission Date: 20111010
  Serious: No
  Sender: FDA-Public Use
  Company Number: US-PFIZER INC-2011123020

PATIENT
  Sex: Female
  Weight: 56.69 kg

DRUGS (2)
  1. LYRICA [Suspect]
     Indication: NEURALGIA
     Dosage: 75 MG, 2X/DAY
     Route: 048
     Dates: start: 20110519
  2. SOMA [Concomitant]
     Indication: MUSCLE RELAXANT THERAPY
     Dosage: HALF TABLET OF 350MG ONCE AT NIGHT
     Dates: start: 20110519, end: 20110519

REACTIONS (8)
  - DRUG EFFECT DECREASED [None]
  - INSOMNIA [None]
  - INCREASED APPETITE [None]
  - VISION BLURRED [None]
  - PSYCHOMOTOR HYPERACTIVITY [None]
  - DIZZINESS [None]
  - AGITATION [None]
  - AGGRESSION [None]
